FAERS Safety Report 18760973 (Version 3)
Quarter: 2021Q1

REPORT INFORMATION
  Report Type: Spontaneous
  Country: JP (occurrence: JP)
  Receive Date: 20210119
  Receipt Date: 20210203
  Transmission Date: 20210419
  Serious: Yes (Death, Other)
  Sender: FDA-Public Use
  Company Number: JP-GILEAD-2021-0513341

PATIENT
  Age: 88 Year
  Sex: Male
  Weight: 63 kg

DRUGS (9)
  1. TICLOPIDINE HYDROCHLORIDE. [Concomitant]
     Active Substance: TICLOPIDINE HYDROCHLORIDE
     Dosage: 100 MG, BID
     Route: 048
     Dates: end: 20210113
  2. GABEXATE MESILATE [Concomitant]
     Active Substance: GABEXATE MESYLATE
     Dosage: 1000 MG, QD
     Dates: start: 20210112, end: 20210113
  3. VEKLURY [Suspect]
     Active Substance: REMDESIVIR
     Indication: COVID-19
     Dosage: 200 MG, QD
     Route: 041
     Dates: start: 20210107, end: 20210107
  4. VEKLURY [Suspect]
     Active Substance: REMDESIVIR
     Dosage: 100 MG, QD
     Route: 041
     Dates: start: 20210108, end: 20210113
  5. FAMOTIDINE. [Concomitant]
     Active Substance: FAMOTIDINE
     Dosage: 10 MG, BID
     Route: 048
     Dates: end: 20210113
  6. TAZOPIPE [Concomitant]
     Active Substance: PIPERACILLIN SODIUM\TAZOBACTAM SODIUM
     Dosage: 4.5 G, TID
     Dates: start: 20210108, end: 20210113
  7. PASIL [Concomitant]
     Active Substance: PAZUFLOXACIN MESILATE
     Indication: INTERSTITIAL LUNG DISEASE
     Dosage: 500 MG, BID
     Dates: start: 20210103, end: 20210107
  8. DEXART [Concomitant]
     Active Substance: DEXAMETHASONE SODIUM PHOSPHATE
     Dosage: 6.6 MG, QD
     Dates: start: 20210105, end: 20210109
  9. SOLU?MEDROL [Concomitant]
     Active Substance: METHYLPREDNISOLONE SODIUM SUCCINATE
     Dosage: 500 MG, QD
     Dates: start: 20210110, end: 20210113

REACTIONS (1)
  - COVID-19 pneumonia [Fatal]
